FAERS Safety Report 7423074-2 (Version None)
Quarter: 2011Q2

REPORT INFORMATION
  Report Type: 
  Country: None (occurrence: None)
  Receive Date: 20110411
  Receipt Date: 20110401
  Transmission Date: 20111010
  Serious: Yes (Disabling)
  Sender: FDA-Public Use
  Company Number: 880408

PATIENT
  Weight: 59 kg

DRUGS (5)
  1. HERCEPTIN [Suspect]
     Indication: BREAST CANCER
     Dosage: INTRAVENOUS
     Route: 042
     Dates: start: 20101117
  2. (METFORMIN) [Concomitant]
  3. LANSOPRAZOLE [Concomitant]
  4. (TAMOXIFEN) [Suspect]
     Indication: BREAST CANCER
     Dosage: 20 MG MILLIGRAM(S), ORAL
     Route: 048
     Dates: start: 20101101
  5. DOCETAXEL [Suspect]
     Indication: BREAST CANCER
     Dosage: 120 MG MILLIGRAM(S), INTRAVENOUS
     Route: 042
     Dates: start: 20101005, end: 20101005

REACTIONS (4)
  - BLINDNESS UNILATERAL [None]
  - GLAUCOMA [None]
  - VISUAL ACUITY REDUCED [None]
  - RETINAL VEIN THROMBOSIS [None]
